FAERS Safety Report 13230215 (Version 1)
Quarter: 2017Q1

REPORT INFORMATION
  Report Type: Spontaneous
  Country: US (occurrence: US)
  Receive Date: 20170214
  Receipt Date: 20170214
  Transmission Date: 20170428
  Serious: Yes (Hospitalization)
  Sender: FDA-Public Use
  Company Number: None

PATIENT
  Age: 66 Year
  Sex: Female
  Weight: 66.8 kg

DRUGS (1)
  1. CISPLATIN. [Suspect]
     Active Substance: CISPLATIN
     Dates: end: 20161220

REACTIONS (8)
  - Unresponsive to stimuli [None]
  - Syncope [None]
  - Subdural haematoma [None]
  - Headache [None]
  - Loss of consciousness [None]
  - Head injury [None]
  - Hypotension [None]
  - Orthostatic hypotension [None]

NARRATIVE: CASE EVENT DATE: 20170109
